FAERS Safety Report 5897043-8 (Version None)
Quarter: 2008Q3

REPORT INFORMATION
  Report Type: 
  Country: None (occurrence: None)
  Receive Date: 20080924
  Receipt Date: 20080917
  Transmission Date: 20090109
  Serious: Yes (Hospitalization, Other)
  Sender: FDA-Public Use
  Company Number: JP-MERCK-0808USA02702

PATIENT
  Age: 76 Year
  Sex: Female
  Weight: 47 kg

DRUGS (29)
  1. FOSAMAX [Suspect]
     Indication: OSTEOPOROSIS
     Route: 048
     Dates: start: 20080128
  2. ONEALFA [Concomitant]
     Indication: OSTEOPOROSIS
     Route: 048
  3. GLAKAY [Concomitant]
     Indication: OSTEOPOROSIS
     Route: 048
  4. CALCIUM LACTATE [Concomitant]
     Indication: OSTEOPOROSIS
     Route: 048
  5. MAGNESIUM OXIDE [Concomitant]
     Indication: CONSTIPATION
     Route: 048
  6. SHAKUYAKU-KANZO-TO [Suspect]
     Indication: MYALGIA
     Route: 048
     Dates: start: 20051221, end: 20080820
  7. MUCOSTA [Concomitant]
     Indication: GASTRITIS
     Route: 048
     Dates: start: 20050817, end: 20080808
  8. MOBIC [Concomitant]
     Indication: SPINAL OSTEOARTHRITIS
     Route: 048
     Dates: start: 20050817
  9. MOHRUS [Concomitant]
     Indication: SPINAL OSTEOARTHRITIS
     Route: 061
     Dates: start: 20051007
  10. CLARITIN [Concomitant]
     Indication: SEASONAL ALLERGY
     Route: 048
     Dates: start: 20061213
  11. JUVELA [Concomitant]
     Indication: HYPERLIPIDAEMIA
     Route: 048
     Dates: start: 20070131
  12. PATANOL [Concomitant]
     Indication: SEASONAL ALLERGY
     Route: 047
     Dates: start: 20070402
  13. ELCITONIN [Concomitant]
     Indication: OSTEOPOROSIS
     Route: 030
     Dates: end: 20080808
  14. CARDENALIN [Concomitant]
     Indication: HYPERTENSION
     Route: 048
     Dates: end: 20080809
  15. ADALAT [Concomitant]
     Indication: HYPERTENSION
     Route: 048
     Dates: end: 20080809
  16. MARZULENE-S [Concomitant]
     Indication: GASTRITIS
     Route: 048
     Dates: end: 20080820
  17. CYANOCOBALAMIN [Concomitant]
     Indication: NEUROPATHY PERIPHERAL
     Route: 048
     Dates: end: 20080820
  18. LIPITOR [Concomitant]
     Indication: HYPERLIPIDAEMIA
     Route: 048
     Dates: end: 20080820
  19. POSTERISAN [Concomitant]
     Indication: HAEMORRHOIDS
     Route: 054
     Dates: end: 20080905
  20. ZYLORIC [Concomitant]
     Indication: HYPERURICAEMIA
     Route: 048
  21. DEPAS [Concomitant]
     Indication: SPINAL OSTEOARTHRITIS
     Route: 048
  22. AMOBAN [Concomitant]
     Indication: INSOMNIA
     Route: 048
  23. SELBEX [Concomitant]
     Indication: GASTRITIS
     Route: 048
  24. BLOPRESS [Concomitant]
     Indication: HYPERTENSION
     Route: 048
  25. TENORMIN [Concomitant]
     Indication: HYPERTENSION
     Route: 048
  26. INTEBAN [Concomitant]
     Indication: SPINAL OSTEOARTHRITIS
     Route: 061
  27. XALATAN [Concomitant]
     Indication: GLAUCOMA
     Route: 047
  28. CARTEOLOL HYDROCHLORIDE [Concomitant]
     Indication: GLAUCOMA
     Route: 047
  29. ISODINE [Concomitant]
     Indication: SEASONAL ALLERGY
     Route: 048

REACTIONS (4)
  - HYPOCALCAEMIA [None]
  - HYPOKALAEMIA [None]
  - HYPOTHYROIDISM [None]
  - OEDEMA [None]
